FAERS Safety Report 20174249 (Version 4)
Quarter: 2022Q1

REPORT INFORMATION
  Report Type: Report from Study
  Country: CA (occurrence: CA)
  Receive Date: 20211213
  Receipt Date: 20220222
  Transmission Date: 20220424
  Serious: Yes (Hospitalization, Other)
  Sender: FDA-Public Use
  Company Number: CA-SUN PHARMACEUTICAL INDUSTRIES LTD-2021R1-319596

PATIENT
  Sex: Female

DRUGS (1)
  1. TILDRAKIZUMAB [Suspect]
     Active Substance: TILDRAKIZUMAB
     Indication: Psoriasis
     Dosage: 100 MILLIGRAM, WEEK 0,4,12
     Route: 058
     Dates: start: 20211009

REACTIONS (11)
  - Immunodeficiency [Unknown]
  - Dyspnoea [Unknown]
  - Infection [Unknown]
  - Pulmonary oedema [Unknown]
  - Lung disorder [Unknown]
  - Weight decreased [Unknown]
  - Asthenia [Unknown]
  - Chest pain [Unknown]
  - Pain [Unknown]
  - COVID-19 [Unknown]
  - Product administration interrupted [Unknown]
